FAERS Safety Report 7381592-X (Version None)
Quarter: 2011Q1

REPORT INFORMATION
  Report Type: 
  Country: None (occurrence: None)
  Receive Date: 20110329
  Receipt Date: 20101004
  Transmission Date: 20110831
  Serious: Yes (Hospitalization, Other)
  Sender: FDA-Public Use
  Company Number: US-BAYER-201016031NA

PATIENT
  Sex: Female
  Weight: 56.689 kg

DRUGS (4)
  1. CLONIDINE [Concomitant]
     Indication: INSOMNIA
  2. YAZ [Suspect]
     Indication: CONTRACEPTION
     Dosage: PFS: 1 MONTH SUPPLY FROM HCP
     Route: 048
     Dates: start: 20060801, end: 20061001
  3. KLONOPIN [Concomitant]
     Indication: ANXIETY
     Dosage: UNK
     Dates: start: 20060101, end: 20080101
  4. NSAID'S [Concomitant]

REACTIONS (7)
  - HYSTERECTOMY [None]
  - LARGE INTESTINAL HAEMORRHAGE [None]
  - MENTAL DISORDER [None]
  - THROMBOSIS [None]
  - DEEP VEIN THROMBOSIS [None]
  - PULMONARY EMBOLISM [None]
  - COLITIS [None]
